FAERS Safety Report 22954505 (Version 2)
Quarter: 2024Q3

REPORT INFORMATION
  Report Type: Spontaneous
  Country: US (occurrence: US)
  Receive Date: 20230918
  Receipt Date: 20240822
  Transmission Date: 20241017
  Serious: No
  Sender: BRISTOL MYERS SQUIBB
  Company Number: US-BRISTOL-MYERS SQUIBB COMPANY-2023-132000

PATIENT
  Age: 86 Year
  Sex: Female
  Weight: 55 kg

DRUGS (2)
  1. REVLIMID [Suspect]
     Active Substance: LENALIDOMIDE
     Indication: Plasma cell myeloma
     Dosage: FREQ: QD X 21 DAYS THEN 7 DAYS OFF
     Route: 048
     Dates: start: 20230330
  2. REVLIMID [Suspect]
     Active Substance: LENALIDOMIDE
     Dosage: FREQ: QD X 21 DAYS THEN 7 DAYS OFF
     Route: 048
     Dates: end: 202408

REACTIONS (2)
  - Coronavirus infection [Unknown]
  - Gastrointestinal disorder [Unknown]
